FAERS Safety Report 24440414 (Version 1)
Quarter: 2024Q4

REPORT INFORMATION
  Report Type: Spontaneous
  Country: US (occurrence: US)
  Receive Date: 20241016
  Receipt Date: 20241016
  Transmission Date: 20250114
  Serious: No
  Sender: RANBAXY
  Company Number: US-SUN PHARMACEUTICAL INDUSTRIES LTD-2024R1-460669

PATIENT
  Sex: Male
  Weight: 68.027 kg

DRUGS (2)
  1. WINLEVI [Suspect]
     Active Substance: CLASCOTERONE
     Indication: Acne
     Dosage: 1 PERCENT, DAILY AT NIGHT
     Route: 061
  2. WINLEVI [Suspect]
     Active Substance: CLASCOTERONE
     Dosage: 1 PERCENT, DAILY AT NIGHT
     Route: 061

REACTIONS (5)
  - Drug ineffective [Unknown]
  - Product physical issue [Unknown]
  - Incorrect dose administered [Unknown]
  - Condition aggravated [Unknown]
  - Product quality issue [Unknown]
